FAERS Safety Report 8161709-X (Version None)
Quarter: 2012Q1

REPORT INFORMATION
  Report Type: 
  Country: None (occurrence: None)
  Receive Date: 20120224
  Receipt Date: 20110218
  Transmission Date: 20120608
  Serious: No
  Sender: FDA-Public Use
  Company Number: US-BRISTOL-MYERS SQUIBB COMPANY-15505779

PATIENT
  Age: 62 Year
  Sex: Female

DRUGS (2)
  1. GLIPIZIDE [Concomitant]
  2. METFORMIN HCL [Suspect]
     Indication: DIABETES MELLITUS MANAGEMENT
     Dosage: FC,STARTED AT 6 OR 7 YEARS AGO DOSE INCREASED TO 1000MG/BID
     Route: 048

REACTIONS (3)
  - APHAGIA [None]
  - ABDOMINAL DISCOMFORT [None]
  - DRUG INEFFECTIVE [None]
